FAERS Safety Report 8281718-X (Version None)
Quarter: 2012Q2

REPORT INFORMATION
  Report Type: 
  Country: None (occurrence: None)
  Receive Date: 20120413
  Receipt Date: 20120411
  Transmission Date: 20120825
  Serious: Yes (Death)
  Sender: FDA-Public Use
  Company Number: IN-PFIZER INC-2011308373

PATIENT
  Age: 68 Year
  Sex: Female

DRUGS (2)
  1. SUTENT [Suspect]
     Indication: METASTATIC RENAL CELL CARCINOMA
     Dosage: 50 MG, 1X/DAY
     Route: 048
     Dates: start: 20111128
  2. SUTENT [Suspect]
     Dosage: 25 MG, UNK
     Route: 048

REACTIONS (9)
  - JOINT SWELLING [None]
  - DYSPNOEA [None]
  - SWELLING [None]
  - DEATH [None]
  - VOMITING [None]
  - DIARRHOEA [None]
  - ASTHENIA [None]
  - PLEURAL EFFUSION [None]
  - YELLOW SKIN [None]
